FAERS Safety Report 16609606 (Version 1)
Quarter: 2019Q3

REPORT INFORMATION
  Report Type: Spontaneous
  Country: US (occurrence: US)
  Receive Date: 20190722
  Receipt Date: 20190722
  Transmission Date: 20191004
  Serious: No
  Sender: FDA-Public Use
  Company Number: US-GLAXOSMITHKLINE-US2019128752

PATIENT
  Age: 65 Year
  Sex: Male

DRUGS (2)
  1. AMLODIPINE [Suspect]
     Active Substance: AMLODIPINE BESYLATE
     Indication: BLOOD PRESSURE MEASUREMENT
     Dosage: 10 MG, UNK
  2. VOLTAREN [Suspect]
     Active Substance: DICLOFENAC SODIUM
     Indication: ARTHRITIS
     Dosage: UNK UNK, BID( 2, MAYBE 3 GRAMS)
     Route: 061
     Dates: start: 20190712, end: 20190713

REACTIONS (12)
  - Flushing [Recovered/Resolved]
  - Labelled drug-disease interaction medication error [Unknown]
  - Asthenia [Recovered/Resolved]
  - Adverse drug reaction [Recovered/Resolved]
  - Dizziness [Recovered/Resolved]
  - Feeling abnormal [Recovered/Resolved]
  - Off label use [Unknown]
  - Headache [Recovered/Resolved]
  - Feeling hot [Recovered/Resolved]
  - Flatulence [Recovered/Resolved]
  - Hangover [Recovered/Resolved]
  - Inappropriate schedule of product administration [Unknown]

NARRATIVE: CASE EVENT DATE: 20190713
